FAERS Safety Report 7543129-1 (Version None)
Quarter: 2011Q2

REPORT INFORMATION
  Report Type: 
  Country: None (occurrence: None)
  Receive Date: 20110613
  Receipt Date: 20110608
  Transmission Date: 20111010
  Serious: Yes (Death, Other)
  Sender: FDA-Public Use
  Company Number: PHHY2011BR21959

PATIENT
  Sex: Male
  Weight: 80 kg

DRUGS (3)
  1. STALEVO 100 [Suspect]
     Indication: PARKINSON'S DISEASE
     Dosage: 150/37,5/200 MG
     Route: 048
  2. PROLOPA [Concomitant]
  3. MANTIDAN [Concomitant]
     Dosage: 1 DF, DAILY

REACTIONS (6)
  - DYSPHAGIA [None]
  - WRONG TECHNIQUE IN DRUG USAGE PROCESS [None]
  - PYREXIA [None]
  - PNEUMONIA [None]
  - CARDIAC ARREST [None]
  - INFECTION [None]
